FAERS Safety Report 4762019-0 (Version None)
Quarter: 2005Q3

REPORT INFORMATION
  Report Type: 
  Country: None (occurrence: None)
  Receive Date: 20050831
  Receipt Date: 20050513
  Transmission Date: 20060218
  Serious: No
  Sender: FDA-Public Use
  Company Number: PHEH2005US05500

PATIENT
  Age: 72 Year
  Sex: Female

DRUGS (1)
  1. ENABLEX [Suspect]
     Indication: HYPERTONIC BLADDER
     Dosage: 15 MG QD ORAL
     Route: 048
     Dates: start: 20050317

REACTIONS (4)
  - DRY THROAT [None]
  - NASAL DRYNESS [None]
  - SINUS CONGESTION [None]
  - URINARY INCONTINENCE [None]
